FAERS Safety Report 12700625 (Version 2)
Quarter: 2016Q3

REPORT INFORMATION
  Report Type: Spontaneous
  Country: US (occurrence: US)
  Receive Date: 20160830
  Receipt Date: 20160923
  Transmission Date: 20161109
  Serious: No
  Sender: FDA-Public Use
  Company Number: US-SHIRE-US201610341

PATIENT
  Age: 28 Year
  Sex: Male
  Weight: 97.51 kg

DRUGS (6)
  1. VYVANSE [Suspect]
     Active Substance: LISDEXAMFETAMINE DIMESYLATE
     Indication: BINGE EATING
     Dosage: 70 MG (30 MG IN MORNING AND 40 MG IN AFTERNOON), OTHER
     Route: 048
     Dates: start: 201607, end: 201607
  2. VYVANSE [Suspect]
     Active Substance: LISDEXAMFETAMINE DIMESYLATE
     Dosage: 40 MG, 2X/DAY:BID
     Route: 048
     Dates: start: 201607
  3. WELLBUTRIN [Concomitant]
     Active Substance: BUPROPION HYDROCHLORIDE
     Indication: ANXIETY
     Dosage: 300 MG, 1X/DAY:QD
     Route: 048
     Dates: start: 2011
  4. FLUOXETINE [Concomitant]
     Active Substance: FLUOXETINE HYDROCHLORIDE
     Indication: PANIC ATTACK
     Dosage: 60 MG, 1X/DAY:QD
     Route: 048
     Dates: start: 2013
  5. VYVANSE [Suspect]
     Active Substance: LISDEXAMFETAMINE DIMESYLATE
     Indication: ATTENTION DEFICIT/HYPERACTIVITY DISORDER
     Dosage: 30 MG, 1X/DAY:QD
     Route: 048
     Dates: start: 20160622, end: 201607
  6. KLONOPIN [Concomitant]
     Active Substance: CLONAZEPAM
     Indication: ANXIETY
     Dosage: 1 MG, 2X/DAY:BID
     Route: 048
     Dates: start: 2011

REACTIONS (4)
  - Bradyphrenia [Unknown]
  - Inappropriate schedule of drug administration [Not Recovered/Not Resolved]
  - Disturbance in attention [Unknown]
  - Prescribed overdose [Not Recovered/Not Resolved]

NARRATIVE: CASE EVENT DATE: 201606
